FAERS Safety Report 9007230 (Version 3)
Quarter: 2013Q1

REPORT INFORMATION
  Report Type: Spontaneous
  Country: US (occurrence: US)
  Receive Date: 20130110
  Receipt Date: 20130206
  Transmission Date: 20140127
  Serious: No
  Sender: FDA-Public Use
  Company Number: US-009507513-1301USA000635

PATIENT
  Sex: Male

DRUGS (2)
  1. PEGINTRON [Suspect]
     Dosage: UNK
     Route: 058
  2. PEGINTRON [Suspect]
     Dosage: UNK

REACTIONS (3)
  - Drug dose omission [Unknown]
  - Medical device complication [Unknown]
  - Product quality issue [Unknown]
